FAERS Safety Report 5130103-8 (Version None)
Quarter: 2006Q4

REPORT INFORMATION
  Report Type: 
  Country: None (occurrence: None)
  Receive Date: 20061013
  Receipt Date: 20060928
  Transmission Date: 20070319
  Serious: Yes (Hospitalization)
  Sender: FDA-Public Use
  Company Number: FR200609007242

PATIENT
  Age: 44 Year
  Sex: Male

DRUGS (3)
  1. ZYPREXA [Suspect]
     Indication: DELUSION
     Dosage: 7.5 MG, DAILY (1/D), ORAL; SEE IMAGE
     Route: 048
     Dates: start: 20030801, end: 20060901
  2. ZYPREXA [Suspect]
     Indication: DELUSION
     Dosage: 7.5 MG, DAILY (1/D), ORAL; SEE IMAGE
     Route: 048
     Dates: start: 20060901, end: 20060901
  3. SEROPRAM /SCH/ (CITALOPRAM HYDROBROMIDE) [Concomitant]

REACTIONS (3)
  - DRUG INEFFECTIVE [None]
  - DRUG INTERACTION [None]
  - PULMONARY EMBOLISM [None]
